FAERS Safety Report 22352253 (Version 1)
Quarter: 2023Q2

REPORT INFORMATION
  Report Type: Spontaneous
  Country: US (occurrence: US)
  Receive Date: 20230522
  Receipt Date: 20230522
  Transmission Date: 20230721
  Serious: No
  Sender: FDA-Public Use
  Company Number: US-PFIZER INC-PV202300089758

PATIENT
  Sex: Female

DRUGS (3)
  1. GEMCITABINE HYDROCHLORIDE [Suspect]
     Active Substance: GEMCITABINE HYDROCHLORIDE
     Indication: Pancreatic carcinoma metastatic
     Dosage: UNK, CYCLIC (EVERY WEEK FOR FIRST 2 WEEKS OF 3 - WEEK CYCLE)
  2. DOCETAXEL [Suspect]
     Active Substance: DOCETAXEL
     Indication: Pancreatic carcinoma metastatic
     Dosage: UNK, CYCLIC (EVERY WEEK FOR FIRST 2 WEEKS OF 3 - WEEK CYCLE)
  3. CAPECITABINE [Suspect]
     Active Substance: CAPECITABINE
     Indication: Pancreatic carcinoma metastatic
     Dosage: UNK, 2X/DAY

REACTIONS (2)
  - Neoplasm progression [Unknown]
  - Off label use [Unknown]
